FAERS Safety Report 5238518-4 (Version None)
Quarter: 2007Q1

REPORT INFORMATION
  Report Type: 
  Country: None (occurrence: None)
  Receive Date: 20070215
  Receipt Date: 20070214
  Transmission Date: 20070707
  Serious: Yes (Other)
  Sender: FDA-Public Use
  Company Number: BR-GLAXOSMITHKLINE-A0639451A

PATIENT
  Age: 17 Year
  Sex: Male

DRUGS (1)
  1. CLAVULIN [Suspect]
     Indication: PHARYNGITIS
     Dosage: 500MG TWICE PER DAY
     Route: 048
     Dates: start: 20070207, end: 20070208

REACTIONS (1)
  - PHARYNGEAL HAEMORRHAGE [None]
